FAERS Safety Report 5831445-0 (Version None)
Quarter: 2008Q4

REPORT INFORMATION
  Report Type: 
  Country: None (occurrence: None)
  Receive Date: 20080730
  Receipt Date: 20080723
  Transmission Date: 20090506
  Serious: Yes (Hospitalization, Other)
  Sender: FDA-Public Use
  Company Number: 2008SP010904

PATIENT
  Age: 48 Year
  Sex: Female
  Weight: 77.1115 kg

DRUGS (11)
  1. INTRON A [Suspect]
     Indication: MALIGNANT MELANOMA
     Dates: start: 20050401, end: 20051201
  2. ZOFRAN [Concomitant]
  3. NASACORT [Concomitant]
  4. PULMICORT-100 [Concomitant]
  5. SEREVENT [Concomitant]
  6. VITAMIN B6 [Concomitant]
  7. METFORMIN HCL [Concomitant]
  8. ADVAIR DISKUS 100/50 [Concomitant]
  9. ACTOS [Concomitant]
  10. INSULIN [Concomitant]
  11. SIMVASTATIN [Concomitant]

REACTIONS (15)
  - ASTHENIA [None]
  - AUTOIMMUNE DISORDER [None]
  - CEREBROVASCULAR ACCIDENT [None]
  - DRUG TOXICITY [None]
  - GAIT DISTURBANCE [None]
  - HEART RATE DECREASED [None]
  - HYPOAESTHESIA [None]
  - MUSCLE SPASMS [None]
  - MYELOPATHY [None]
  - NEUROPATHY PERIPHERAL [None]
  - PHOTOPHOBIA [None]
  - PHOTOSENSITIVITY REACTION [None]
  - POLYNEUROPATHY [None]
  - UPPER RESPIRATORY TRACT INFECTION [None]
  - VIRAL INFECTION [None]
